FAERS Safety Report 16420887 (Version 1)
Quarter: 2019Q2

REPORT INFORMATION
  Report Type: Spontaneous
  Country: US (occurrence: US)
  Receive Date: 20190612
  Receipt Date: 20190612
  Transmission Date: 20190711
  Serious: No
  Sender: FDA-Public Use
  Company Number: US-US WORLDMEDS, LLC-USW201905-000974

PATIENT
  Age: 67 Year
  Sex: Female

DRUGS (6)
  1. LUCEMYRA [Suspect]
     Active Substance: LOFEXIDINE
     Indication: DEPENDENCE
     Dates: start: 20190508
  2. NORETHINDRONE. [Concomitant]
     Active Substance: NORETHINDRONE
     Indication: MENOPAUSE
  3. LUCEMYRA [Suspect]
     Active Substance: LOFEXIDINE
     Dates: start: 20190509
  4. CALCIUM [Concomitant]
     Active Substance: CALCIUM
  5. ESTRADIOL. [Concomitant]
     Active Substance: ESTRADIOL
     Indication: MENOPAUSE
  6. BYSTOLIC [Concomitant]
     Active Substance: NEBIVOLOL HYDROCHLORIDE
     Indication: HYPERTENSION

REACTIONS (6)
  - Dyspnoea [Unknown]
  - Dizziness [Unknown]
  - Hypersomnia [Recovered/Resolved]
  - Tinnitus [Recovered/Resolved]
  - Therapy non-responder [Unknown]
  - Somnolence [Unknown]

NARRATIVE: CASE EVENT DATE: 20190508
